FAERS Safety Report 5699768-6 (Version None)
Quarter: 2008Q2

REPORT INFORMATION
  Report Type: 
  Country: None (occurrence: None)
  Receive Date: 20080410
  Receipt Date: 20080410
  Transmission Date: 20081010
  Serious: Yes (Life-Threatening, Hospitalization)
  Sender: FDA-Public Use
  Company Number: None

PATIENT
  Age: 64 Year
  Sex: Male
  Weight: 88 kg

DRUGS (2)
  1. HEPARIN [Suspect]
     Dosage: TITRATE UNITS PER HOUR IV
     Route: 042
     Dates: start: 20080227, end: 20080228
  2. EPTIFIBATIDE [Suspect]
     Dosage: 15ML PER HOUR IV
     Route: 042
     Dates: start: 20080222, end: 20080224

REACTIONS (7)
  - ALCOHOL WITHDRAWAL SYNDROME [None]
  - CARDIOGENIC SHOCK [None]
  - DELIRIUM [None]
  - DELIRIUM TREMENS [None]
  - HEPARIN-INDUCED THROMBOCYTOPENIA [None]
  - PERIPHERAL ARTERY DISSECTION [None]
  - THROMBOSIS IN DEVICE [None]
